FAERS Safety Report 23530260 (Version 2)
Quarter: 2024Q3

REPORT INFORMATION
  Report Type: Report from Study
  Country: US (occurrence: US)
  Receive Date: 20240216
  Receipt Date: 20240823
  Transmission Date: 20241017
  Serious: No
  Sender: MERCK
  Company Number: US-009507513-2401USA015589

PATIENT
  Age: 64 Year
  Sex: Female

DRUGS (2)
  1. VERQUVO [Suspect]
     Active Substance: VERICIGUAT
     Dosage: 10 MG TAB ONCE DAILY
     Route: 048
     Dates: end: 20240119
  2. VERQUVO [Suspect]
     Active Substance: VERICIGUAT
     Dosage: UNK
     Route: 048
     Dates: start: 2024, end: 20240728

REACTIONS (4)
  - Product use issue [Unknown]
  - Product dose omission issue [Unknown]
  - Product dose omission issue [Unknown]
  - No adverse event [Unknown]

NARRATIVE: CASE EVENT DATE: 20240119
